FAERS Safety Report 14081763 (Version 1)
Quarter: 2017Q4

REPORT INFORMATION
  Report Type: Spontaneous
  Country: US (occurrence: None)
  Receive Date: 20171012
  Receipt Date: 20171012
  Transmission Date: 20180321
  Serious: Yes (Hospitalization)
  Sender: FDA-Public Use
  Company Number: None

PATIENT
  Age: 54 Year
  Sex: Female
  Weight: 59.6 kg

DRUGS (13)
  1. PROMETHAZINE [Concomitant]
     Active Substance: PROMETHAZINE\PROMETHAZINE HYDROCHLORIDE
  2. LORAZEPAM. [Concomitant]
     Active Substance: LORAZEPAM
  3. APIXABAN [Suspect]
     Active Substance: APIXABAN
     Route: 048
     Dates: start: 20170630
  4. DIPHENOXYLATE-ATROPINE [Concomitant]
  5. SPIRIVA [Concomitant]
     Active Substance: TIOTROPIUM BROMIDE MONOHYDRATE
  6. OXYCODONE-ACETAMINOPHEN [Concomitant]
     Active Substance: ACETAMINOPHEN\OXYCODONE HYDROCHLORIDE
  7. SENNOSIDES. [Concomitant]
     Active Substance: SENNOSIDES
  8. AMLODIPINE [Concomitant]
     Active Substance: AMLODIPINE BESYLATE
  9. PROCHLORPERAZINE. [Concomitant]
     Active Substance: PROCHLORPERAZINE
  10. BUTALBITAL-ASPIRIN-CAFFENINE [Concomitant]
  11. LOPERAMIDE [Concomitant]
     Active Substance: LOPERAMIDE
  12. ALBUTEROL. [Concomitant]
     Active Substance: ALBUTEROL
  13. ONDASETRON [Concomitant]
     Active Substance: ONDANSETRON

REACTIONS (11)
  - Vomiting [None]
  - Anxiety [None]
  - Hepatic lesion [None]
  - Lymphadenopathy mediastinal [None]
  - Diarrhoea [None]
  - Nausea [None]
  - Palpitations [None]
  - Hypertension [None]
  - Chest pain [None]
  - Emphysema [None]
  - Lymphadenopathy [None]

NARRATIVE: CASE EVENT DATE: 20171011
